FAERS Safety Report 7341061-X (Version None)
Quarter: 2011Q1

REPORT INFORMATION
  Report Type: 
  Country: None (occurrence: None)
  Receive Date: 20110309
  Receipt Date: 20110222
  Transmission Date: 20110831
  Serious: Yes (Other)
  Sender: FDA-Public Use
  Company Number: PHHY2011GB14747

PATIENT
  Age: 75 Year
  Sex: Female

DRUGS (3)
  1. LOSARTAN POTASSIUM [Suspect]
     Dosage: 100 MG, QD
     Route: 048
     Dates: start: 20110126, end: 20110207
  2. LOSARTAN POTASSIUM [Suspect]
     Dosage: 50 MG, QD
     Route: 048
     Dates: start: 20110210, end: 20110201
  3. LOSARTAN POTASSIUM [Suspect]
     Indication: BLOOD PRESSURE ABNORMAL
     Dosage: 50 MG, QD
     Route: 048
     Dates: start: 20101114, end: 20110125

REACTIONS (5)
  - NASAL CONGESTION [None]
  - LOWER RESPIRATORY TRACT INFECTION [None]
  - INFLUENZA LIKE ILLNESS [None]
  - FEELING COLD [None]
  - COUGH [None]
